FAERS Safety Report 17419028 (Version 1)
Quarter: 2020Q1

REPORT INFORMATION
  Report Type: Spontaneous
  Country: FI (occurrence: FI)
  Receive Date: 20200214
  Receipt Date: 20200214
  Transmission Date: 20200409
  Serious: Yes (Other)
  Sender: FDA-Public Use
  Company Number: FI-SA-2020SA034466

PATIENT
  Age: 19 Year
  Sex: Male

DRUGS (4)
  1. PANADOL [Concomitant]
     Active Substance: ACETAMINOPHEN
     Indication: PREMEDICATION
     Dosage: UNK UNK, UNK
     Route: 065
     Dates: start: 202001, end: 202001
  2. FABRAZYME [Suspect]
     Active Substance: AGALSIDASE BETA
     Dosage: 1 MG/KG, UNK
     Route: 041
  3. LORATADINE. [Concomitant]
     Active Substance: LORATADINE
     Indication: PREMEDICATION
     Dosage: UNK UNK, UNK
     Route: 065
     Dates: start: 202001, end: 202001
  4. PREDNISOLONE. [Concomitant]
     Active Substance: PREDNISOLONE
     Indication: PREMEDICATION
     Dosage: UNK UNK, UNK
     Route: 065
     Dates: start: 202001, end: 202001

REACTIONS (5)
  - Fatigue [Recovered/Resolved]
  - Appendicitis [Recovered/Resolved]
  - Eczema [Recovered/Resolved]
  - Cough [Recovered/Resolved]
  - Dyspnoea [Recovered/Resolved]

NARRATIVE: CASE EVENT DATE: 201908
